FAERS Safety Report 8988764 (Version 1)
Quarter: 2012Q4

REPORT INFORMATION
  Report Type: Spontaneous
  Country: US (occurrence: None)
  Receive Date: 20121224
  Receipt Date: 20121224
  Transmission Date: 20130627
  Serious: Yes (Death)
  Sender: FDA-Public Use
  Company Number: None

PATIENT
  Age: 78 Year
  Sex: Male
  Weight: 80.3 kg

DRUGS (1)
  1. AGGRENOX [Suspect]
     Route: 048

REACTIONS (8)
  - Agitation [None]
  - Aggression [None]
  - Confusional state [None]
  - Incoherent [None]
  - Haemorrhage intracranial [None]
  - Carotid artery occlusion [None]
  - Brain herniation [None]
  - Intracranial pressure increased [None]
